FAERS Safety Report 9233621 (Version 1)
Quarter: 2013Q2

REPORT INFORMATION
  Report Type: Spontaneous
  Country: US (occurrence: US)
  Receive Date: 20130416
  Receipt Date: 20130416
  Transmission Date: 20140414
  Serious: No
  Sender: FDA-Public Use
  Company Number: US-BANPHARM-20130599

PATIENT
  Age: 80 Year
  Sex: Male
  Weight: 72.12 kg

DRUGS (6)
  1. ALEVE LIQUID GELS 220MG [Suspect]
     Indication: PAIN
     Route: 048
     Dates: start: 20130124
  2. FLUTAMIDE [Concomitant]
  3. GLIMEPIRIDE [Concomitant]
  4. SERTRALINE [Concomitant]
  5. LYRICA [Concomitant]
  6. VESICARE [Concomitant]

REACTIONS (4)
  - Dyspnoea [Not Recovered/Not Resolved]
  - Chest pain [Not Recovered/Not Resolved]
  - Dysphagia [Not Recovered/Not Resolved]
  - Sensation of foreign body [Not Recovered/Not Resolved]
